FAERS Safety Report 9466648 (Version 1)
Quarter: 2013Q3

REPORT INFORMATION
  Report Type: Spontaneous
  Country: US (occurrence: None)
  Receive Date: 20130816
  Receipt Date: 20130816
  Transmission Date: 20140515
  Serious: Yes (Hospitalization)
  Sender: FDA-Public Use
  Company Number: None

PATIENT
  Age: 58 Year
  Sex: Male
  Weight: 126.4 kg

DRUGS (2)
  1. WARFARIN [Suspect]
     Indication: ATRIAL FIBRILLATION
     Route: 048
     Dates: start: 20130718, end: 20130724
  2. ENOXAPARIN (GENERIC) [Suspect]
     Indication: ATRIAL FIBRILLATION
     Route: 058
     Dates: start: 20130718, end: 20130724

REACTIONS (3)
  - Haemorrhage [None]
  - Anaemia [None]
  - Abdominal wall haematoma [None]
